FAERS Safety Report 6495171-X (Version None)
Quarter: 2009Q4

REPORT INFORMATION
  Report Type: 
  Country: None (occurrence: None)
  Receive Date: 20091214
  Receipt Date: 20090508
  Transmission Date: 20100525
  Serious: No
  Sender: FDA-Public Use
  Company Number: US-BRISTOL-MYERS SQUIBB COMPANY-14616981

PATIENT
  Age: 12 Year
  Sex: Male

DRUGS (2)
  1. ABILIFY [Suspect]
     Dosage: STARTED AT DOSE OF 15MG P.O. QD; THEN DOSE REDUCED TO 10 MG
     Route: 048
     Dates: start: 20070101
  2. VYVANSE [Concomitant]
     Dosage: INITIATED AT 50MG P.O. QD; DOSE INCREASED TO 70 MG
     Route: 048

REACTIONS (1)
  - DYSKINESIA [None]
